FAERS Safety Report 5708466-1 (Version None)
Quarter: 2008Q2

REPORT INFORMATION
  Report Type: 
  Country: None (occurrence: None)
  Receive Date: 20080417
  Receipt Date: 20080411
  Transmission Date: 20081010
  Serious: Yes (Other)
  Sender: FDA-Public Use
  Company Number: US-PFIZER INC-2008014623

PATIENT
  Sex: Female
  Weight: 68 kg

DRUGS (8)
  1. LIPITOR [Suspect]
     Indication: BLOOD CHOLESTEROL
     Route: 048
  2. COLCHICINE [Concomitant]
  3. ALLOPURINOL [Concomitant]
  4. ACCUPRIL [Concomitant]
  5. PLAVIX [Concomitant]
  6. ACETYLSALICYLIC ACID SRT [Concomitant]
  7. VITAMIN E [Concomitant]
     Dosage: TEXT:200 UNITS
  8. ESTER-C [Concomitant]

REACTIONS (3)
  - BLOOD CHOLESTEROL INCREASED [None]
  - BLOOD URIC ACID INCREASED [None]
  - LIMB OPERATION [None]
